FAERS Safety Report 19228412 (Version 2)
Quarter: 2021Q2

REPORT INFORMATION
  Report Type: Spontaneous
  Country: US (occurrence: US)
  Receive Date: 20210507
  Receipt Date: 20210521
  Transmission Date: 20210717
  Serious: Yes (Other)
  Sender: FDA-Public Use
  Company Number: US-AUROBINDO-AUR-APL-2021-018044

PATIENT
  Age: 84 Year
  Sex: Female
  Weight: 45.36 kg

DRUGS (2)
  1. AMOXICILLIN AND CLAVULANATE POTASSIUM TABLETS USP  875 MG/125 MG [Suspect]
     Active Substance: AMOXICILLIN\CLAVULANATE POTASSIUM
     Indication: SINUSITIS
     Dosage: UNK
     Route: 065
     Dates: start: 202103
  2. PFIZER?BIONTECH COVID?19 VACCINE [Suspect]
     Active Substance: TOZINAMERAN
     Indication: PRODUCT USED FOR UNKNOWN INDICATION
     Dosage: UNK, ARM LEFT ADMINISTERED AT 5:00 PM ON 07?MAR?2021 (SECOND DOSE)
     Route: 030
     Dates: start: 20210214

REACTIONS (10)
  - Head discomfort [Unknown]
  - Headache [Recovering/Resolving]
  - Hypertension [Recovered/Resolved]
  - Feeling abnormal [Unknown]
  - Sinus pain [Unknown]
  - Sinusitis [Unknown]
  - Drug ineffective [Unknown]
  - Dizziness [Recovering/Resolving]
  - Decreased appetite [Unknown]
  - Erythema [Unknown]

NARRATIVE: CASE EVENT DATE: 202103
